FAERS Safety Report 4328660-4 (Version None)
Quarter: 2004Q1

REPORT INFORMATION
  Report Type: 
  Country: None (occurrence: None)
  Receive Date: 20040322
  Receipt Date: 20040301
  Transmission Date: 20041129
  Serious: Yes (Other)
  Sender: FDA-Public Use
  Company Number: 2004SA000054

PATIENT
  Age: 63 Year
  Sex: Male

DRUGS (27)
  1. THYMOGLOBULIN [Suspect]
     Indication: APLASTIC ANAEMIA
     Dosage: INTRAVENOUS
     Route: 042
     Dates: start: 20031031, end: 20031101
  2. AMBISOME [Suspect]
     Indication: SYSTEMIC MYCOSIS
     Dosage: DAILY; INTRAVENOUS
     Route: 042
     Dates: start: 20031013
  3. METOCLOPRAMIDE [Concomitant]
  4. METOPIMAZINE [Concomitant]
  5. VORICONAZOLE [Concomitant]
  6. POTASSIUM [Concomitant]
  7. OMEPRAZOLE [Concomitant]
  8. ACETAMINOPHEN [Concomitant]
  9. DIOSMIN [Concomitant]
  10. HYDROXYZINE [Concomitant]
  11. LOPERAMIDE HCL [Concomitant]
  12. PLATELETS INFUSION AND HUMAN BLOOD CELLS [Concomitant]
  13. NEFOPAM [Concomitant]
  14. RED BLOOD CELLS [Concomitant]
  15. TAZOCILLINE [Concomitant]
  16. FILGRASTIM [Concomitant]
  17. VANCOMYCIN [Concomitant]
  18. CIPROFLOXACIN [Concomitant]
  19. AMIKACIN [Concomitant]
  20. AMPHOTERICIN B [Concomitant]
  21. EPOETIN ALFA [Concomitant]
  22. PRIMAXIN [Concomitant]
  23. METHYLPREDNISOLONE [Concomitant]
  24. ZOPICLONE [Concomitant]
  25. CHLORPROMAZINE [Concomitant]
  26. NICARDIPINE HCL [Concomitant]
  27. FUROSEMIDE [Concomitant]

REACTIONS (2)
  - BLOOD BILIRUBIN INCREASED [None]
  - HYPOKALAEMIA [None]
